FAERS Safety Report 10060561 (Version 1)
Quarter: 2014Q2

REPORT INFORMATION
  Report Type: Spontaneous
  Country: FR (occurrence: FR)
  Receive Date: 20140404
  Receipt Date: 20140404
  Transmission Date: 20141212
  Serious: Yes (Life-Threatening, Hospitalization)
  Sender: FDA-Public Use
  Company Number: FR-DSJP-DSE-2014-103031

PATIENT
  Sex: 0

DRUGS (18)
  1. OLMETEC 40 MG [Suspect]
     Indication: HYPERTENSION
     Dosage: 40 MG, QD
     Route: 048
     Dates: start: 201309, end: 20131125
  2. METFORMIN TEVA [Suspect]
     Indication: TYPE 2 DIABETES MELLITUS
     Dosage: 850 MG, QID
     Route: 048
     Dates: end: 20131125
  3. FUROSEMIDE SANDOZ [Suspect]
     Indication: HYPERTENSION
     Dosage: 40 MG, QD
     Route: 048
     Dates: end: 20131125
  4. PROFENID LP [Suspect]
     Indication: PAIN
     Dosage: 100 MG, ONCE EVERY 8HR
     Route: 048
     Dates: start: 20131123, end: 20131125
  5. HYPERIUM [Concomitant]
     Indication: HYPERTENSION
     Dosage: 1 MG, QD
     Route: 048
     Dates: end: 20131125
  6. DOLIPRANE [Concomitant]
     Indication: PAIN
     Dosage: 1000 MG, QD
     Route: 048
     Dates: start: 20131123, end: 20131125
  7. TOPALGIC LP [Concomitant]
     Indication: PAIN
     Dosage: 100 MG, BID
     Route: 048
     Dates: start: 20131123, end: 20131125
  8. VERAPAMIL TEVA [Concomitant]
     Indication: HYPERTENSION
     Dosage: 240 MG, QD
     Route: 048
     Dates: end: 20131125
  9. ATORVASTATIN [Concomitant]
     Indication: CARDIAC FAILURE CONGESTIVE
     Dosage: 40 MG, QD
     Dates: end: 20131125
  10. LEVEMIR [Concomitant]
     Indication: TYPE 2 DIABETES MELLITUS
     Dosage: 48 IU, QD
     Route: 058
  11. ALLOPURINOL TEVA [Concomitant]
     Indication: GOUTY ARTHRITIS
     Dosage: 100 MG, QD
     Route: 048
     Dates: end: 20131125
  12. KEFANDOL                           /00483101/ [Concomitant]
     Indication: PRODUCT USED FOR UNKNOWN INDICATION
     Dosage: 750 MG, ONCE EVERY 6HR
     Route: 042
     Dates: start: 20131121, end: 20131123
  13. MORPHINE RENAUDIN [Concomitant]
     Dosage: 1 DF, QD
     Route: 042
     Dates: end: 20131123
  14. DROLEPTAN [Concomitant]
     Indication: PRODUCT USED FOR UNKNOWN INDICATION
     Dosage: 5MG/100 ML, QD
     Route: 042
     Dates: start: 20131121, end: 20131123
  15. PERFALGAN [Concomitant]
     Indication: PAIN
     Dosage: 1 G, ONCE EVERY 6HR
     Route: 042
     Dates: start: 20131121, end: 20131123
  16. LOVENOX [Concomitant]
     Indication: PRODUCT USED FOR UNKNOWN INDICATION
     Dosage: 1 DF, QD
     Route: 058
     Dates: start: 20131121, end: 20131125
  17. REPAGLINIDE [Concomitant]
     Indication: TYPE 2 DIABETES MELLITUS
     Dosage: 2 MG, QD
     Route: 048
     Dates: end: 20131125
  18. CELIPROLOL TEVA [Concomitant]
     Indication: HYPERTENSION
     Dosage: 200 MG, QD
     Route: 048
     Dates: end: 20131125

REACTIONS (6)
  - Lactic acidosis [Recovered/Resolved]
  - Drug level increased [Recovered/Resolved]
  - Bradycardia [Recovered/Resolved]
  - Renal tubular necrosis [Unknown]
  - Renal failure acute [Recovered/Resolved with Sequelae]
  - Hyperkalaemia [Recovered/Resolved]
